FAERS Safety Report 25918205 (Version 1)
Quarter: 2025Q4

REPORT INFORMATION
  Report Type: Spontaneous
  Country: US (occurrence: US)
  Receive Date: 20251014
  Receipt Date: 20251014
  Transmission Date: 20260118
  Serious: Yes (Life-Threatening, Hospitalization)
  Sender: BAYER HEALTHCARE LLC
  Company Number: US-BAYER-2025A131811

PATIENT
  Age: 73 Year
  Sex: Male
  Weight: 64.7 kg

DRUGS (3)
  1. ASPIRIN [Suspect]
     Active Substance: ASPIRIN
     Indication: Coronary artery disease
     Dosage: UNK
     Route: 048
  2. IBRANCE [Suspect]
     Active Substance: PALBOCICLIB
     Dosage: 125 MG,DAILY
     Route: 048
  3. APIXABAN [Suspect]
     Active Substance: APIXABAN
     Indication: Embolism
     Dosage: UNK
     Route: 048

REACTIONS (3)
  - Anaemia [Recovered/Resolved]
  - Gastrointestinal haemorrhage [None]
  - Labelled drug-drug interaction issue [None]
